FAERS Safety Report 6740124-7 (Version None)
Quarter: 2010Q2

REPORT INFORMATION
  Report Type: 
  Country: None (occurrence: None)
  Receive Date: 20100525
  Receipt Date: 20100430
  Transmission Date: 20101027
  Serious: No
  Sender: FDA-Public Use
  Company Number: US-BAYER-201021276NA

PATIENT
  Age: 63 Year
  Sex: Female

DRUGS (2)
  1. ULTRAVIST 300 [Suspect]
     Indication: COMPUTERISED TOMOGRAM ABDOMEN
     Dosage: 2.5 ML/SEC INTO LEFT ANTECUBITAL, WARMER
     Route: 042
     Dates: start: 20100428, end: 20100428
  2. READI-CAT [Concomitant]
     Route: 048
     Dates: start: 20100428, end: 20100428

REACTIONS (4)
  - BURNING SENSATION [None]
  - ERYTHEMA [None]
  - SNEEZING [None]
  - THROAT IRRITATION [None]
